FAERS Safety Report 6583870-0 (Version None)
Quarter: 2010Q1

REPORT INFORMATION
  Report Type: 
  Country: None (occurrence: None)
  Receive Date: 20100213
  Receipt Date: 20100213
  Transmission Date: 20100710
  Serious: Yes (Other)
  Sender: FDA-Public Use
  Company Number: None

PATIENT
  Sex: Male
  Weight: 24.4 kg

DRUGS (6)
  1. SIROLIMUS [Suspect]
     Indication: NEUROFIBROMATOSIS
     Dosage: 2.0 MG BID PO
     Route: 048
     Dates: start: 20090821, end: 20090914
  2. SIROLIMUS [Suspect]
     Indication: NEUROFIBROMATOSIS
     Dosage: 1.5 BID PO
     Route: 048
     Dates: start: 20090915, end: 20091101
  3. CHOLESTYRAMINE POWDER [Concomitant]
  4. CIPRO [Concomitant]
  5. BACTRIM PREVACID [Concomitant]
  6. PREVACID [Concomitant]

REACTIONS (2)
  - DRUG INTOLERANCE [None]
  - LOW DENSITY LIPOPROTEIN INCREASED [None]
